APPROVED DRUG PRODUCT: SULFABID
Active Ingredient: SULFAPHENAZOLE
Strength: 500MG/5ML
Dosage Form/Route: SUSPENSION;ORAL
Application: N013093 | Product #001
Applicant: PHARMACEUTICAL RESEARCH ASSOC INC
Approved: Approved Prior to Jan 1, 1982 | RLD: No | RS: No | Type: DISCN